FAERS Safety Report 9091176 (Version 1)
Quarter: 2013Q1

REPORT INFORMATION
  Report Type: Spontaneous
  Country: FR (occurrence: FR)
  Receive Date: 20130131
  Receipt Date: 20130131
  Transmission Date: 20140127
  Serious: Yes (Hospitalization, Disabling)
  Sender: FDA-Public Use
  Company Number: FR-PFIZER INC-2013036276

PATIENT
  Age: 64 Year
  Sex: Male

DRUGS (3)
  1. TAHOR [Suspect]
     Dosage: 40 MG, 1X/DAY
     Route: 048
     Dates: start: 20110728, end: 20111028
  2. PLAVIX [Suspect]
     Dosage: 75 MG, 1X/DAY
     Route: 048
     Dates: start: 20110728, end: 20111028
  3. PROCORALAN [Suspect]
     Dosage: 5 MG, 2X/DAY
     Route: 048
     Dates: start: 20110728, end: 20111028

REACTIONS (1)
  - Dermatomyositis [Recovered/Resolved with Sequelae]
